FAERS Safety Report 13586384 (Version 1)
Quarter: 2017Q2

REPORT INFORMATION
  Report Type: Spontaneous
  Country: BR (occurrence: BR)
  Receive Date: 20170526
  Receipt Date: 20170526
  Transmission Date: 20170830
  Serious: Yes (Hospitalization, Other)
  Sender: FDA-Public Use
  Company Number: BR-TEVA-771587ROM

PATIENT
  Age: 82 Year
  Sex: Female
  Weight: 72 kg

DRUGS (17)
  1. MITEXAN [Suspect]
     Active Substance: MESNA
     Indication: NON-HODGKIN^S LYMPHOMA
     Dosage: 02 TABLETS (NOT INFORMED THE FREQUENCY OF USE)
     Route: 048
     Dates: start: 20170130
  2. SIMETHICONE (DIMETHICONE) [Concomitant]
     Active Substance: DIMETHICONE
  3. VENLAXIN [Concomitant]
     Active Substance: VENLAFAXINE HYDROCHLORIDE
  4. DONAREN [Concomitant]
     Active Substance: TRAZODONE HYDROCHLORIDE
  5. DECADRON [Concomitant]
     Active Substance: DEXAMETHASONE
  6. NAUSEDRON [Concomitant]
     Active Substance: ONDANSETRON HYDROCHLORIDE
  7. HOLOXANE [Suspect]
     Active Substance: IFOSFAMIDE
     Indication: NON-HODGKIN^S LYMPHOMA
     Route: 042
     Dates: start: 20170130, end: 201702
  8. BUSCOPAN [Concomitant]
     Active Substance: BUTYLSCOPOLAMINE BROMIDE
  9. AAS [Concomitant]
     Active Substance: ASPIRIN
  10. TEVAETOPO [Suspect]
     Active Substance: ETOPOSIDE
     Indication: NON-HODGKIN^S LYMPHOMA
     Route: 042
     Dates: start: 20170130, end: 201702
  11. ATORVASTATIN [Concomitant]
     Active Substance: ATORVASTATIN
  12. PURAN [Concomitant]
     Active Substance: LEVOTHYROXINE SODIUM
     Indication: HYPOTHYROIDISM
  13. MITEXAN [Suspect]
     Active Substance: MESNA
     Indication: NON-HODGKIN^S LYMPHOMA
     Dosage: 01 TABLET (NOT INFORMED THE FREQUENCY OF USE)
     Route: 048
     Dates: start: 20170130, end: 201702
  14. MUVINLAX [Concomitant]
     Active Substance: ELECTROLYTES NOS\POLYETHYLENE GLYCOL 3350
  15. MITEXAN [Suspect]
     Active Substance: MESNA
     Indication: NON-HODGKIN^S LYMPHOMA
     Route: 042
     Dates: start: 20170130, end: 201702
  16. OMEPRAZOLE. [Concomitant]
     Active Substance: OMEPRAZOLE
  17. LABIRIN [Concomitant]
     Active Substance: BETAHISTINE

REACTIONS (7)
  - Neutropenia [Recovered/Resolved]
  - Dysuria [Recovered/Resolved]
  - General physical health deterioration [Recovered/Resolved]
  - Dehydration [Recovered/Resolved]
  - Urosepsis [Recovered/Resolved]
  - Escherichia infection [Recovered/Resolved]
  - Thrombocytopenia [Recovered/Resolved]

NARRATIVE: CASE EVENT DATE: 20170207
